FAERS Safety Report 17269688 (Version 1)
Quarter: 2020Q1

REPORT INFORMATION
  Report Type: Report from Study
  Country: US (occurrence: US)
  Receive Date: 20200114
  Receipt Date: 20200114
  Transmission Date: 20200409
  Serious: Yes (Other)
  Sender: FDA-Public Use
  Company Number: US-GLAXOSMITHKLINE-US2019TSO228756

PATIENT
  Sex: Male

DRUGS (5)
  1. ROLAPITANT HYDROCHLORIDE [Suspect]
     Active Substance: ROLAPITANT
     Indication: PRODUCT USED FOR UNKNOWN INDICATION
     Dosage: 180 MG EVERY 2 WEEKS
     Dates: start: 20191129
  2. DEXAMETHASONE. [Concomitant]
     Active Substance: DEXAMETHASONE
     Indication: PRODUCT USED FOR UNKNOWN INDICATION
     Dosage: 20 MG, ON SUNDAY WITH DINNER
     Dates: start: 20191201
  3. XPOVIO [Suspect]
     Active Substance: SELINEXOR
     Dosage: UNK
  4. OLANZAPINE. [Suspect]
     Active Substance: OLANZAPINE
     Indication: PRODUCT USED FOR UNKNOWN INDICATION
  5. XPOVIO [Suspect]
     Active Substance: SELINEXOR
     Indication: PRODUCT USED FOR UNKNOWN INDICATION
     Dosage: UNK
     Dates: start: 20191201

REACTIONS (11)
  - Taste disorder [Not Recovered/Not Resolved]
  - Product dose omission [Unknown]
  - Muscle spasticity [Unknown]
  - White blood cell count decreased [Not Recovered/Not Resolved]
  - Hepatic enzyme increased [Recovered/Resolved]
  - Constipation [Recovered/Resolved]
  - Respiratory tract infection [Unknown]
  - Peripheral swelling [Unknown]
  - Arthropod bite [Unknown]
  - Platelet count decreased [Not Recovered/Not Resolved]
  - Diarrhoea [Recovered/Resolved]

NARRATIVE: CASE EVENT DATE: 201912
